FAERS Safety Report 9215662 (Version 3)
Quarter: 2013Q2

REPORT INFORMATION
  Report Type: Spontaneous
  Country: AT (occurrence: AT)
  Receive Date: 20130408
  Receipt Date: 20130422
  Transmission Date: 20140414
  Serious: Yes (Hospitalization)
  Sender: FDA-Public Use
  Company Number: AT-AMGEN-AUTSP2013022553

PATIENT
  Age: 65 Year
  Sex: Female
  Weight: 93 kg

DRUGS (5)
  1. NEULASTA [Suspect]
     Indication: PRODUCT USED FOR UNKNOWN INDICATION
     Dosage: 6 MG, 1 X
     Route: 058
     Dates: start: 20130315, end: 20130315
  2. 5-FLUOROURACIL /00098801/ [Suspect]
     Indication: BREAST CANCER
     Dosage: 1146 MG, Q3WK
     Route: 042
     Dates: start: 20130314, end: 20130314
  3. MYOCET [Suspect]
     Indication: BREAST CANCER
     Dosage: 95 MG, Q3WK
     Route: 042
     Dates: start: 20130314, end: 20130314
  4. ENDOXAN /00021101/ [Suspect]
     Indication: BREAST CANCER
     Dosage: 1146 MG, Q3WK
     Route: 042
     Dates: start: 20130314, end: 20130314
  5. CHEMOTHERAPEUTICS [Concomitant]
     Indication: BREAST CANCER
     Dosage: UNK

REACTIONS (1)
  - Febrile neutropenia [Recovered/Resolved]
